FAERS Safety Report 16055669 (Version 1)
Quarter: 2019Q1

REPORT INFORMATION
  Report Type: Spontaneous
  Country: US (occurrence: US)
  Receive Date: 20190208
  Receipt Date: 20190208
  Transmission Date: 20190418
  Serious: Yes (Death)
  Sender: FDA-Public Use
  Company Number: None

PATIENT
  Age: 76 Year
  Sex: Female

DRUGS (1)
  1. NEUPOGEN [Suspect]
     Active Substance: FILGRASTIM
     Indication: CHOLANGIOCARCINOMA
     Dosage: ?          OTHER FREQUENCY:AFTER INF;?
     Route: 058
     Dates: start: 20181030

REACTIONS (1)
  - Death [None]
